FAERS Safety Report 7767581-1 (Version None)
Quarter: 2011Q3

REPORT INFORMATION
  Report Type: 
  Country: None (occurrence: None)
  Receive Date: 20110922
  Receipt Date: 20110915
  Transmission Date: 20111222
  Serious: Yes (Death)
  Sender: FDA-Public Use
  Company Number: US-JNJFOC-20110906842

PATIENT
  Age: 20 Year
  Sex: Female

DRUGS (2)
  1. NUCYNTA [Suspect]
     Indication: PERITONSILLAR ABSCESS
     Dosage: 1-2 TABLETS EVERY 6 HRS
     Route: 065
     Dates: start: 20110727
  2. TYLENOL W/ CODEINE NO. 3 [Suspect]
     Indication: PERITONSILLAR ABSCESS
     Route: 065

REACTIONS (4)
  - MULTIPLE DRUG OVERDOSE [None]
  - HEPATITIS ACUTE [None]
  - RESPIRATORY FAILURE [None]
  - INFECTIOUS MONONUCLEOSIS [None]
